FAERS Safety Report 19610037 (Version 1)
Quarter: 2021Q3

REPORT INFORMATION
  Report Type: Report from Study
  Country: DE (occurrence: DE)
  Receive Date: 20210726
  Receipt Date: 20210726
  Transmission Date: 20211014
  Serious: Yes (Hospitalization, Other)
  Sender: FDA-Public Use
  Company Number: DE-MYLANLABS-2019M1058546

PATIENT
  Age: 55 Year
  Sex: Male
  Weight: 80 kg

DRUGS (5)
  1. HULIO [Suspect]
     Active Substance: ADALIMUMAB-FKJP
     Indication: PSORIASIS
     Dosage: 40 MILLIGRAM
     Route: 058
     Dates: start: 20181213, end: 20190420
  2. LERCANIDIPINE [Concomitant]
     Active Substance: LERCANIDIPINE
     Indication: PRODUCT USED FOR UNKNOWN INDICATION
     Dosage: 10 MILLIGRAM
     Route: 048
     Dates: start: 20150804, end: 20190313
  3. RAMIPRIL. [Concomitant]
     Active Substance: RAMIPRIL
     Indication: PRODUCT USED FOR UNKNOWN INDICATION
     Dosage: 5 MILLIGRAM, QD (1?0?0)
     Route: 048
     Dates: start: 20190313
  4. HULIO [Suspect]
     Active Substance: ADALIMUMAB-FKJP
     Dosage: 40 MILLIGRAM
     Route: 058
     Dates: start: 20190613
  5. HUMIRA [Suspect]
     Active Substance: ADALIMUMAB
     Indication: PSORIASIS
     Dosage: UNK
     Route: 058
     Dates: start: 20160416, end: 20181212

REACTIONS (9)
  - Pulmonary hypertension [Unknown]
  - Hypertension [Unknown]
  - Upper respiratory tract infection [Unknown]
  - Mitral valve prolapse [Unknown]
  - Palpitations [Unknown]
  - Mitral valve incompetence [Unknown]
  - Chordae tendinae rupture [Unknown]
  - Dyspnoea exertional [Unknown]
  - Coronary artery disease [Unknown]

NARRATIVE: CASE EVENT DATE: 20190310
